FAERS Safety Report 5914134-3 (Version None)
Quarter: 2008Q4

REPORT INFORMATION
  Report Type: 
  Country: None (occurrence: None)
  Receive Date: 20081009
  Receipt Date: 20080929
  Transmission Date: 20090506
  Serious: Yes (Death, Life-Threatening, Hospitalization)
  Sender: FDA-Public Use
  Company Number: US-ABBOTT-08P-163-0478861-08

PATIENT
  Sex: Female
  Weight: 47 kg

DRUGS (16)
  1. HUMIRA [Suspect]
     Indication: RHEUMATOID ARTHRITIS
     Route: 058
     Dates: start: 20000816, end: 20080723
  2. HUMIRA [Suspect]
     Route: 058
     Dates: end: 20080928
  3. ACETYLSALICYLIC ACID SRT [Concomitant]
     Indication: CARDIOVASCULAR EVENT PROPHYLAXIS
     Route: 048
     Dates: start: 20080701, end: 20080928
  4. PANTOPRAZOLE SODIUM [Concomitant]
     Indication: GASTROOESOPHAGEAL REFLUX DISEASE
     Route: 048
     Dates: start: 20080701, end: 20080928
  5. LEVOTHYROXINE SODIUM [Concomitant]
     Indication: HYPOTHYROIDISM
     Route: 048
     Dates: start: 20080705, end: 20080928
  6. SACCHAROMYCES BOULARDII [Concomitant]
     Indication: PROPHYLAXIS AGAINST GASTROINTESTINAL ULCER
     Route: 048
     Dates: start: 20080731, end: 20080928
  7. PROPACET 100 [Concomitant]
     Indication: BACK PAIN
     Route: 048
     Dates: start: 20080701, end: 20080928
  8. RALOXIFENE HCL [Concomitant]
     Indication: OSTEOPOROSIS PROPHYLAXIS
     Route: 048
     Dates: start: 20050617, end: 20080928
  9. FOLIC ACID [Concomitant]
     Indication: RHEUMATOID ARTHRITIS
     Route: 048
     Dates: start: 20050617, end: 20080928
  10. METHOTREXATE SODIUM [Concomitant]
     Indication: RHEUMATOID ARTHRITIS
     Route: 048
     Dates: start: 20080701, end: 20080829
  11. GRANULEX [Concomitant]
     Indication: SKIN DISORDER
     Dosage: 1 APPLICATION
     Route: 061
     Dates: start: 20080730, end: 20080928
  12. CEFTRIAXONE [Concomitant]
     Indication: URINARY TRACT INFECTION
     Route: 042
     Dates: start: 20080804, end: 20080928
  13. DONEPEZIL HCL [Concomitant]
     Indication: DEMENTIA OF THE ALZHEIMER'S TYPE, WITH DELIRIUM
     Route: 048
     Dates: start: 20080729, end: 20080928
  14. CALCIUM CARBONATE [Concomitant]
     Indication: OSTEOPOROSIS
     Route: 048
     Dates: start: 20080701, end: 20080928
  15. CELECOXIB [Concomitant]
     Indication: RHEUMATOID ARTHRITIS
     Route: 048
     Dates: start: 20050708, end: 20080928
  16. MOEXIPRIL HCL [Concomitant]
     Indication: HYPERTENSION
     Route: 048
     Dates: start: 20050708, end: 20080928

REACTIONS (1)
  - UROSEPSIS [None]
